FAERS Safety Report 4279885-8 (Version None)
Quarter: 2004Q1

REPORT INFORMATION
  Report Type: 
  Country: None (occurrence: None)
  Receive Date: 20040126
  Receipt Date: 20040119
  Transmission Date: 20041129
  Serious: Yes (Death, Hospitalization)
  Sender: FDA-Public Use
  Company Number: 8004994

PATIENT
  Age: 75 Year
  Sex: Male
  Weight: 80 kg

DRUGS (9)
  1. KEPPRA [Suspect]
     Indication: EPILEPSY
     Dosage: 1 G PO
     Route: 048
     Dates: start: 20030913, end: 20030924
  2. KEPPRA [Suspect]
     Indication: EPILEPSY
     Dosage: 1.5 G PO
     Route: 048
     Dates: start: 20030925, end: 20040116
  3. GODAMED [Concomitant]
  4. FUROSEMIDE [Concomitant]
  5. ISOPTIN TAB [Concomitant]
  6. CAPTOHEXAL [Concomitant]
  7. NOVODIGAL [Concomitant]
  8. ORFIRIL LONG [Concomitant]
  9. JODID [Concomitant]

REACTIONS (4)
  - CONVULSION [None]
  - CORONARY ARTERY DISEASE [None]
  - MYOCARDIAL INFARCTION [None]
  - PNEUMONIA ASPIRATION [None]
